FAERS Safety Report 5196589-8 (Version None)
Quarter: 2006Q4

REPORT INFORMATION
  Report Type: 
  Country: None (occurrence: None)
  Receive Date: 20061229
  Receipt Date: 20061229
  Transmission Date: 20070319
  Serious: Yes (Life-Threatening, Hospitalization)
  Sender: FDA-Public Use
  Company Number: None

PATIENT
  Age: 78 Year
  Sex: Male
  Weight: 97.6 kg

DRUGS (11)
  1. IMATINIB MESYLATE [Suspect]
     Indication: RENAL CELL CARCINOMA STAGE UNSPECIFIED
     Dosage: 600MG  PER DAY PO
     Route: 048
     Dates: start: 20061208, end: 20061226
  2. RAD001 [Suspect]
     Indication: RENAL CELL CARCINOMA STAGE UNSPECIFIED
     Dosage: 2.5MG  PER DAY PO
     Route: 048
     Dates: start: 20061208, end: 20061226
  3. LEVOTHYROXINE SODIUM [Concomitant]
  4. ZOCOR [Concomitant]
  5. ZOLOFT [Concomitant]
  6. METOPROLOL SUCCINATE [Concomitant]
  7. UROXATRAL [Concomitant]
  8. ASPIRIN [Concomitant]
  9. BENADRYL [Concomitant]
  10. HYDROCHLOROTHIAZIDE [Concomitant]
  11. KEFLEX [Concomitant]

REACTIONS (1)
  - MYOCARDIAL INFARCTION [None]
